FAERS Safety Report 26088856 (Version 1)
Quarter: 2025Q4

REPORT INFORMATION
  Report Type: Spontaneous
  Country: EU (occurrence: EU)
  Receive Date: 20251125
  Receipt Date: 20251125
  Transmission Date: 20260118
  Serious: Yes (Congenital Anomaly, Other)
  Sender: SANDOZ
  Company Number: EU-EMB-M202403464-1

PATIENT
  Sex: Male

DRUGS (10)
  1. BLEOMYCIN [Suspect]
     Active Substance: BLEOMYCIN SULFATE
     Indication: Ovarian germ cell teratoma
     Dosage: 15 MG, QW ( 3 CYCLES: BEP-SCHEME, GW 26 TO 34) (PARENT ROUTE: INTRAVENOUS USE)
     Route: 064
     Dates: start: 202403, end: 202405
  2. CISPLATIN [Suspect]
     Active Substance: CISPLATIN
     Indication: Ovarian germ cell teratoma
     Dosage: 20 MG/M2, 3 CYCLES: BEP-SCHEME, GW 26 TO 33, 5X /WK EVERY 3 WEEKS (PARENT ROUTE: INTRAVENOUS USE)
     Route: 064
     Dates: start: 202403, end: 202405
  3. ETOPOSIDE [Suspect]
     Active Substance: ETOPOSIDE
     Indication: Ovarian germ cell teratoma
     Dosage: 100 MG/M2 (3 CYCLES: BEP-SCHEME, GW 26 TO 33, 5X /WK EVERY 3 WEEKS) (PARENT ROUTE: INTRAVENOUS USE)
     Route: 064
     Dates: start: 202403, end: 202405
  4. HYDROCHLOROTHIAZIDE [Suspect]
     Active Substance: HYDROCHLOROTHIAZIDE
     Indication: Oedema
     Dosage: CONCOMITANT THERAPY DUE TO 3 CYCLES CHEMOTHERAPY: GW 26 TO 33, 5X/WK EVERY 3 WEEKS, DOSAGE UNKNOWN,
     Route: 064
     Dates: start: 202403, end: 202405
  5. ONDANSETRON [Suspect]
     Active Substance: ONDANSETRON
     Indication: Prophylaxis of nausea and vomiting
     Dosage: CONCOMITANT THERAPY DUE TO 3 CYCLES CHEMOTHERAPY: GW 29 TO 33, 5X/WK EVERY 3 WEEKS, DOSAGE UNKNOWN,
     Route: 064
     Dates: start: 202404, end: 202405
  6. PREDNISOLONE [Suspect]
     Active Substance: PREDNISOLONE
     Indication: Prophylaxis of nausea and vomiting
     Dosage: CONCOMITANT THERAPY DUE TO 3 CYCLES CHEMOTHERAPY: GW 29 TO 33, 5X/WK EVERY 3 WEEKS (D1: 150 MG, D2-5
     Route: 064
     Dates: start: 202404, end: 202405
  7. ERYTHROPOIETIN [Concomitant]
     Active Substance: ERYTHROPOIETIN
     Indication: Anaemia
     Dosage: 40000 IU, QW, STRENGTH-40IU
     Route: 064
     Dates: start: 202404, end: 202405
  8. HUMAN RED BLOOD CELL [Concomitant]
     Active Substance: HUMAN RED BLOOD CELL
     Indication: Anaemia
     Dosage: 2 CONCENTRATES IN GW 27 (2 TOTAL)
     Route: 064
     Dates: start: 202404, end: 202404
  9. FERINJECT [Concomitant]
     Active Substance: FERRIC CARBOXYMALTOSE
     Indication: Anaemia
     Dosage: 500 MG, QD
     Route: 064
     Dates: start: 202403, end: 202403
  10. DINOPROSTONE [Concomitant]
     Active Substance: DINOPROSTONE
     Indication: Labour induction
     Dosage: UNK, QD
     Route: 064

REACTIONS (4)
  - Atrial septal defect [Unknown]
  - Small for dates baby [Recovered/Resolved]
  - Microcephaly [Recovered/Resolved]
  - Foetal exposure during pregnancy [Unknown]

NARRATIVE: CASE EVENT DATE: 20240601
